FAERS Safety Report 5487206-8 (Version None)
Quarter: 2007Q3

REPORT INFORMATION
  Report Type: 
  Country: None (occurrence: None)
  Receive Date: 20070925
  Receipt Date: 20070621
  Transmission Date: 20080115
  Serious: No
  Sender: FDA-Public Use
  Company Number: 2007US001441

PATIENT
  Age: 56 Year
  Sex: Female

DRUGS (4)
  1. VESICARE [Suspect]
     Indication: INCONTINENCE
     Dosage: 5 MG, UID/QD; 5 MG, UID/QD, ORAL
     Route: 048
     Dates: start: 20061201, end: 20070619
  2. VESICARE [Suspect]
     Indication: INCONTINENCE
     Dosage: 5 MG, UID/QD; 5 MG, UID/QD, ORAL
     Route: 048
     Dates: start: 20070714
  3. ZIAC [Concomitant]
  4. CELEBREX [Concomitant]

REACTIONS (5)
  - BALANCE DISORDER [None]
  - DIZZINESS [None]
  - HALO VISION [None]
  - VERTIGO [None]
  - VISION BLURRED [None]
